FAERS Safety Report 7356113-8 (Version None)
Quarter: 2011Q1

REPORT INFORMATION
  Report Type: 
  Country: None (occurrence: None)
  Receive Date: 20110316
  Receipt Date: 20110225
  Transmission Date: 20110831
  Serious: Yes (Hospitalization)
  Sender: FDA-Public Use
  Company Number: US-BAYER-201034484NA

PATIENT
  Sex: Female
  Weight: 62.585 kg

DRUGS (4)
  1. YASMIN [Suspect]
     Indication: UTERINE LEIOMYOMA
     Dosage: UNK
     Route: 048
     Dates: start: 20040901, end: 20050110
  2. YASMIN [Suspect]
     Indication: MENOMETRORRHAGIA
  3. ANAPROX [Concomitant]
     Indication: DYSMENORRHOEA
  4. IRON [Concomitant]
     Indication: IRON DEFICIENCY ANAEMIA

REACTIONS (3)
  - DYSPNOEA [None]
  - PELVIC VENOUS THROMBOSIS [None]
  - PULMONARY EMBOLISM [None]
